FAERS Safety Report 16016074 (Version 1)
Quarter: 2019Q1

REPORT INFORMATION
  Report Type: Spontaneous
  Country: FR (occurrence: FR)
  Receive Date: 20190228
  Receipt Date: 20190228
  Transmission Date: 20190418
  Serious: Yes (Hospitalization)
  Sender: FDA-Public Use
  Company Number: FR-TEVA-2019-FR-1016385

PATIENT
  Age: 82 Year
  Sex: Male

DRUGS (4)
  1. LOPERAMIDE BASE [Concomitant]
     Active Substance: LOPERAMIDE
     Indication: GOUT
     Route: 048
     Dates: start: 201406
  2. SMECTA [Concomitant]
     Active Substance: MONTMORILLONITE
     Indication: GOUT
     Route: 048
     Dates: start: 201406
  3. TRAMADOL. [Suspect]
     Active Substance: TRAMADOL
     Indication: GOUT
     Dosage: 150 MILLIGRAM DAILY;
     Route: 048
     Dates: start: 201406
  4. COLCHICINE. [Suspect]
     Active Substance: COLCHICINE
     Indication: GOUT
     Route: 048
     Dates: start: 201406

REACTIONS (3)
  - Dehydration [Unknown]
  - General physical health deterioration [Unknown]
  - Diarrhoea [Unknown]

NARRATIVE: CASE EVENT DATE: 201406
